FAERS Safety Report 10061137 (Version 2)
Quarter: 2014Q2

REPORT INFORMATION
  Report Type: Spontaneous
  Country: US (occurrence: US)
  Receive Date: 20140406
  Receipt Date: 20140610
  Transmission Date: 20141212
  Serious: Yes (Death)
  Sender: FDA-Public Use
  Company Number: US-BRISTOL-MYERS SQUIBB COMPANY-20592820

PATIENT
  Age: 56 Year
  Sex: Male

DRUGS (10)
  1. BYETTA [Suspect]
     Dates: start: 20070419, end: 20101202
  2. ADDERALL [Concomitant]
  3. ATENOLOL [Concomitant]
  4. OMEPRAZOLE [Concomitant]
  5. PAXIL [Concomitant]
  6. VALIUM [Concomitant]
  7. ZOFRAN [Concomitant]
  8. DILAUDID [Concomitant]
  9. BENADRYL [Concomitant]
  10. PRILOSEC [Concomitant]

REACTIONS (1)
  - Pancreatic carcinoma [Fatal]
